FAERS Safety Report 5226687-1 (Version None)
Quarter: 2007Q1

REPORT INFORMATION
  Report Type: 
  Country: None (occurrence: None)
  Receive Date: 20070201
  Receipt Date: 20070118
  Transmission Date: 20070707
  Serious: Yes (Hospitalization, Disabling, Congenital Anomaly, Other)
  Sender: FDA-Public Use
  Company Number: GB-ELI_LILLY_AND_COMPANY-GB200701003366

PATIENT
  Age: 7 Month
  Sex: Male

DRUGS (3)
  1. DULOXETINE HYDROCHLORIDE [Suspect]
     Route: 064
     Dates: start: 20060308, end: 20060322
  2. ESCITALOPRAM OXALATE [Concomitant]
     Route: 064
     Dates: start: 20051017, end: 20060914
  3. LOFEPRAMINE [Concomitant]
     Route: 064
     Dates: start: 20060121, end: 20060218

REACTIONS (2)
  - DRUG EXPOSURE DURING PREGNANCY [None]
  - NOONAN SYNDROME [None]
